FAERS Safety Report 10178214 (Version 10)
Quarter: 2014Q4

REPORT INFORMATION
  Report Type: Report from Study
  Country: DE (occurrence: DE)
  Receive Date: 20140519
  Receipt Date: 20141208
  Transmission Date: 20150528
  Serious: Yes (Life-Threatening, Hospitalization)
  Sender: FDA-Public Use
  Company Number: DE-ROCHE-1392951

PATIENT
  Sex: Female

DRUGS (38)
  1. CYCLOPHOSPHAMIDE. [Suspect]
     Active Substance: CYCLOPHOSPHAMIDE
     Route: 042
     Dates: start: 20140423, end: 20140423
  2. RAMIPRIL. [Concomitant]
     Active Substance: RAMIPRIL
     Indication: HYPERTENSION
     Route: 065
     Dates: start: 2013
  3. ACICLOVIR [Concomitant]
     Active Substance: ACYCLOVIR
     Route: 048
     Dates: start: 20140502
  4. RITUXIMAB [Suspect]
     Active Substance: RITUXIMAB
     Indication: B-CELL LYMPHOMA
     Route: 042
     Dates: start: 20140328, end: 20140422
  5. VINCRISTINE [Suspect]
     Active Substance: VINCRISTINE
     Indication: B-CELL LYMPHOMA
     Route: 042
     Dates: start: 20140409
  6. NALOXONE HYDROCHLORIDE. [Concomitant]
     Active Substance: NALOXONE HYDROCHLORIDE
     Indication: PAIN
     Route: 048
     Dates: start: 2013
  7. FUROSEMIDE. [Concomitant]
     Active Substance: FUROSEMIDE
     Indication: CARDIAC FAILURE
     Route: 065
     Dates: start: 2013
  8. RITUXIMAB [Suspect]
     Active Substance: RITUXIMAB
     Route: 042
     Dates: start: 20140422, end: 20140422
  9. VINCRISTINE [Suspect]
     Active Substance: VINCRISTINE
     Route: 042
     Dates: start: 20140423, end: 20140423
  10. METAMIZOLE SODIUM [Concomitant]
     Active Substance: METAMIZOLE SODIUM
     Indication: PAIN
     Route: 048
     Dates: start: 2014
  11. FUROSEMIDE. [Concomitant]
     Active Substance: FUROSEMIDE
     Indication: POLYURIA
     Route: 042
     Dates: start: 20140522, end: 20140522
  12. DICLOFENAC [Concomitant]
     Active Substance: DICLOFENAC
     Indication: PAIN
     Route: 048
     Dates: start: 20140521
  13. SULFAMETHOXAZOLE/TRIMETHOPRIM [Concomitant]
     Active Substance: SULFAMETHOXAZOLE\TRIMETHOPRIM
     Route: 048
     Dates: start: 20140502
  14. AMLODIPINE BESYLATE. [Concomitant]
     Active Substance: AMLODIPINE BESYLATE
     Indication: HYPERTENSION
     Route: 048
  15. RITUXIMAB [Suspect]
     Active Substance: RITUXIMAB
     Route: 042
     Dates: start: 20140509, end: 20140509
  16. PREDNISONE. [Suspect]
     Active Substance: PREDNISONE
     Indication: B-CELL LYMPHOMA
     Route: 048
     Dates: start: 20140409
  17. MORPHINE SULFATE. [Concomitant]
     Active Substance: MORPHINE SULFATE
     Indication: PAIN
     Route: 048
     Dates: start: 201404
  18. METHOTREXATE DISODIUM [Suspect]
     Active Substance: METHOTREXATE SODIUM
     Indication: B-CELL LYMPHOMA
     Route: 042
     Dates: start: 20140329, end: 20140329
  19. LINEZOLID. [Concomitant]
     Active Substance: LINEZOLID
     Indication: URINARY TRACT INFECTION
     Route: 048
     Dates: start: 20140505
  20. CEFTRIAXONE. [Concomitant]
     Active Substance: CEFTRIAXONE
     Indication: URINARY TRACT INFECTION
     Route: 042
     Dates: start: 20140505
  21. PEGFILGRASTIM [Suspect]
     Active Substance: PEGFILGRASTIM
     Indication: B-CELL LYMPHOMA
     Route: 058
     Dates: start: 20140424, end: 20140425
  22. CYCLOPHOSPHAMIDE. [Suspect]
     Active Substance: CYCLOPHOSPHAMIDE
     Indication: B-CELL LYMPHOMA
     Route: 042
     Dates: start: 20140409
  23. DOXORUBICINE [Suspect]
     Active Substance: DOXORUBICIN
     Route: 042
     Dates: start: 20140423, end: 20140423
  24. PREDNISONE. [Suspect]
     Active Substance: PREDNISONE
     Route: 048
     Dates: start: 20140422, end: 20140427
  25. RAMIPRIL. [Concomitant]
     Active Substance: RAMIPRIL
     Route: 048
  26. PEGFILGRASTIM [Suspect]
     Active Substance: PEGFILGRASTIM
     Route: 058
     Dates: start: 20140425
  27. DOXORUBICINE [Suspect]
     Active Substance: DOXORUBICIN
     Indication: B-CELL LYMPHOMA
     Route: 042
     Dates: start: 20140409
  28. VINCRISTINE [Suspect]
     Active Substance: VINCRISTINE
     Route: 042
     Dates: start: 20140510, end: 20140510
  29. AMOXICILLIN/CLAVULANIC ACID [Concomitant]
     Active Substance: AMOXICILLIN\CLAVULANIC ACID
     Indication: URINARY TRACT INFECTION
     Dosage: 375/125 MG
     Route: 048
     Dates: start: 20140515, end: 20140520
  30. PARACETAMOL [Concomitant]
     Active Substance: ACETAMINOPHEN
     Indication: PAIN
     Route: 048
     Dates: start: 20140522
  31. PANTOPRAZOL NATRIUM [Concomitant]
     Route: 048
     Dates: start: 2014
  32. PEGFILGRASTIM [Suspect]
     Active Substance: PEGFILGRASTIM
     Route: 058
     Dates: start: 20140515, end: 20140515
  33. CYCLOPHOSPHAMIDE. [Suspect]
     Active Substance: CYCLOPHOSPHAMIDE
     Route: 042
     Dates: start: 20140510, end: 20140510
  34. DOXORUBICINE [Suspect]
     Active Substance: DOXORUBICIN
     Route: 042
     Dates: start: 20140510, end: 20140510
  35. NATRIUMCHLORID [Concomitant]
     Indication: HYPONATRAEMIA
     Route: 048
     Dates: start: 2013
  36. NATRIUMCHLORID [Concomitant]
     Route: 042
     Dates: start: 20140522
  37. SPIRONOLACTON [Concomitant]
     Active Substance: SPIRONOLACTONE
     Indication: POLYURIA
     Route: 048
     Dates: start: 201405, end: 20140522
  38. ENOXAPARIN SODIUM. [Concomitant]
     Active Substance: ENOXAPARIN SODIUM
     Route: 058
     Dates: start: 20140522

REACTIONS (6)
  - Confusional state [Recovered/Resolved]
  - Upper limb fracture [Not Recovered/Not Resolved]
  - Gastrointestinal infection [Recovered/Resolved]
  - Psychotic disorder [Recovered/Resolved]
  - Cystitis [Recovered/Resolved]
  - Agitation [Recovered/Resolved]

NARRATIVE: CASE EVENT DATE: 20140414
